FAERS Safety Report 10186262 (Version 2)
Quarter: 2014Q2

REPORT INFORMATION
  Report Type: Spontaneous
  Country: ZA (occurrence: ZA)
  Receive Date: 20140521
  Receipt Date: 20140617
  Transmission Date: 20141212
  Serious: Yes (Hospitalization)
  Sender: FDA-Public Use
  Company Number: ZA-PFIZER INC-2014135565

PATIENT
  Age: 32 Year
  Sex: Male

DRUGS (1)
  1. EPANUTIN [Suspect]
     Indication: VERTIGO
     Dosage: UNK
     Route: 048

REACTIONS (3)
  - Off label use [Unknown]
  - Palpitations [Recovered/Resolved]
  - Dyspnoea [Recovered/Resolved]
